FAERS Safety Report 8556584-5 (Version None)
Quarter: 2012Q3

REPORT INFORMATION
  Report Type: 
  Country: None (occurrence: None)
  Receive Date: 20120719
  Receipt Date: 20120704
  Transmission Date: 20120928
  Serious: Yes (Hospitalization)
  Sender: FDA-Public Use
  Company Number: MPS1-1000698

PATIENT
  Age: 3 Year
  Sex: Female

DRUGS (1)
  1. ALDURAZYME [Suspect]
     Indication: MUCOPOLYSACCHARIDOSIS I
     Dosage: INTRAVENOUS
     Route: 042

REACTIONS (2)
  - VIRAL INFECTION [None]
  - DYSPNOEA [None]
